FAERS Safety Report 7153173-4 (Version None)
Quarter: 2010Q4

REPORT INFORMATION
  Report Type: 
  Country: None (occurrence: None)
  Receive Date: 20101209
  Receipt Date: 20101209
  Transmission Date: 20110411
  Serious: Yes (Hospitalization, Disabling, Other)
  Sender: FDA-Public Use
  Company Number: None

PATIENT
  Sex: Female
  Weight: 63.5036 kg

DRUGS (1)
  1. PROLIA [Suspect]
     Indication: OSTEOPOROSIS
     Dosage: 60MG/ML 6 MONTH INJECTION
     Dates: start: 20101111

REACTIONS (7)
  - BACK PAIN [None]
  - BURNING SENSATION [None]
  - HYPOAESTHESIA [None]
  - LIP DRY [None]
  - MUSCLE SPASMS [None]
  - PAIN [None]
  - PERIPHERAL COLDNESS [None]
